FAERS Safety Report 8008694-9 (Version None)
Quarter: 2011Q4

REPORT INFORMATION
  Report Type: 
  Country: None (occurrence: None)
  Receive Date: 20111227
  Receipt Date: 20111221
  Transmission Date: 20120403
  Serious: Yes (Other)
  Sender: FDA-Public Use
  Company Number: ES-MERCK-1111ESP00004

PATIENT
  Age: 36 Month
  Sex: Female

DRUGS (3)
  1. SINGULAIR [Suspect]
     Indication: ASTHMA
     Route: 048
  2. ALBUTEROL SULFATE [Concomitant]
     Indication: ASTHMATIC CRISIS
     Route: 055
  3. BUDESONIDE [Concomitant]
     Indication: ASTHMATIC CRISIS
     Route: 055

REACTIONS (1)
  - BRONCHOSPASM [None]
